FAERS Safety Report 13949061 (Version 2)
Quarter: 2017Q3

REPORT INFORMATION
  Report Type: Spontaneous
  Country: US (occurrence: US)
  Receive Date: 20170908
  Receipt Date: 20170918
  Transmission Date: 20171128
  Serious: Yes (Other)
  Sender: FDA-Public Use
  Company Number: US-ZYDUS-016439

PATIENT
  Age: 63 Year
  Sex: Female

DRUGS (4)
  1. VORICONAZOLE. [Interacting]
     Active Substance: VORICONAZOLE
     Indication: PROPHYLAXIS
     Route: 065
  2. OXYCODONE [Suspect]
     Active Substance: OXYCODONE
     Indication: MUSCULOSKELETAL PAIN
     Dosage: 30MG/12 HOURS AND 15-30MG/4 HOURS
     Route: 065
  3. PIPERACILLIN/TAZOBACTAM [Concomitant]
     Indication: PROPHYLAXIS
     Route: 065
  4. VANCOMYCIN [Concomitant]
     Active Substance: VANCOMYCIN
     Indication: PROPHYLAXIS
     Route: 065

REACTIONS (8)
  - Drug interaction [Unknown]
  - Sepsis [Unknown]
  - Neurotoxicity [Unknown]
  - Mental disorder [Unknown]
  - Sedation [Unknown]
  - Delirium [Unknown]
  - Myoclonus [Unknown]
  - Condition aggravated [Unknown]
